FAERS Safety Report 4878156-6 (Version None)
Quarter: 2005Q4

REPORT INFORMATION
  Report Type: 
  Country: None (occurrence: None)
  Receive Date: 20051212
  Receipt Date: 20051107
  Transmission Date: 20060501
  Serious: Yes (Other)
  Sender: FDA-Public Use
  Company Number: 2005-02333

PATIENT
  Sex: 0

DRUGS (1)
  1. VELCADE [Suspect]
     Route: 065

REACTIONS (1)
  - PANCREATITIS [None]
